FAERS Safety Report 26141493 (Version 1)
Quarter: 2025Q4

REPORT INFORMATION
  Report Type: Spontaneous
  Country: US (occurrence: US)
  Receive Date: 20251210
  Receipt Date: 20251210
  Transmission Date: 20260117
  Serious: No
  Sender: PFIZER
  Company Number: US-PFIZER INC-202500239069

PATIENT
  Age: 76 Year
  Sex: Female

DRUGS (1)
  1. IBRANCE [Suspect]
     Active Substance: PALBOCICLIB
     Dosage: 125 MG, TAKE 1 TABLET DAILY ON DAYS 1 THROUGH 21 EVERY 28 DAYS
     Route: 048

REACTIONS (2)
  - Hypersensitivity [Unknown]
  - Bronchitis chronic [Unknown]
